FAERS Safety Report 26113687 (Version 1)
Quarter: 2025Q4

REPORT INFORMATION
  Report Type: Spontaneous
  Country: SA (occurrence: SA)
  Receive Date: 20251202
  Receipt Date: 20251202
  Transmission Date: 20260117
  Serious: Yes (Hospitalization, Other)
  Sender: AMGEN
  Company Number: SA-AMGEN-SAUSP2025233973

PATIENT

DRUGS (1)
  1. ADALIMUMAB [Suspect]
     Active Substance: ADALIMUMAB
     Indication: Inflammatory bowel disease
     Dosage: UNK
     Route: 065

REACTIONS (6)
  - Inflammatory bowel disease [Unknown]
  - Small intestinal obstruction [Unknown]
  - Abdominal abscess [Unknown]
  - Zinc deficiency [Unknown]
  - Anal fistula [Unknown]
  - Anaemia [Unknown]
